FAERS Safety Report 4363956-1 (Version None)
Quarter: 2004Q2

REPORT INFORMATION
  Report Type: 
  Country: None (occurrence: None)
  Receive Date: 20040525
  Receipt Date: 20040517
  Transmission Date: 20050107
  Serious: Yes (Hospitalization)
  Sender: FDA-Public Use
  Company Number: CA-BRISTOL-MYERS SQUIBB COMPANY-12588398

PATIENT
  Age: 74 Year
  Sex: Female

DRUGS (3)
  1. TRAZODONE HCL [Suspect]
     Indication: MAJOR DEPRESSION
     Dosage: REACTION OCCURRED 48 HOURS AFTER TRAZODONE WAS INCREASED FROM 50 TO 100 MG DAILY
     Route: 048
  2. CLONAZEPAM [Suspect]
     Indication: MAJOR DEPRESSION
     Route: 048
  3. CITALOPRAM [Suspect]
     Indication: MAJOR DEPRESSION
     Route: 048

REACTIONS (1)
  - SEROTONIN SYNDROME [None]
